FAERS Safety Report 24647069 (Version 1)
Quarter: 2024Q4

REPORT INFORMATION
  Report Type: Spontaneous
  Country: CN (occurrence: CN)
  Receive Date: 20241121
  Receipt Date: 20241121
  Transmission Date: 20250115
  Serious: Yes (Hospitalization)
  Sender: PFIZER
  Company Number: CN-PFIZER INC-PV202400149182

PATIENT
  Age: 18 Year
  Sex: Female
  Weight: 58.6 kg

DRUGS (4)
  1. CYTARABINE [Suspect]
     Active Substance: CYTARABINE
     Indication: Acute myelomonocytic leukaemia
     Dosage: 0.03 G, 1X/DAY
     Route: 037
     Dates: start: 20241016, end: 20241016
  2. CYTARABINE [Suspect]
     Active Substance: CYTARABINE
     Dosage: 1.7 G, 1X/DAY
     Route: 041
     Dates: start: 20241017, end: 20241017
  3. METHOTREXATE SODIUM [Suspect]
     Active Substance: METHOTREXATE SODIUM
     Indication: Acute myelomonocytic leukaemia
     Dosage: 10 MG, 1X/DAY
     Route: 037
     Dates: start: 20241016, end: 20241016
  4. DAUNORUBICIN HYDROCHLORIDE [Suspect]
     Active Substance: DAUNORUBICIN HYDROCHLORIDE
     Indication: Acute myelomonocytic leukaemia
     Dosage: 20 MG, ALTERNATE DAY
     Route: 041
     Dates: start: 20241017, end: 20241022

REACTIONS (14)
  - Myelosuppression [Recovering/Resolving]
  - Agranulocytosis [Recovering/Resolving]
  - Platelet count decreased [Recovering/Resolving]
  - Ecchymosis [Recovering/Resolving]
  - Petechiae [Recovering/Resolving]
  - Haematochezia [Recovering/Resolving]
  - Heavy menstrual bleeding [Recovering/Resolving]
  - Pyrexia [Recovering/Resolving]
  - Asthenia [Recovering/Resolving]
  - Headache [Recovering/Resolving]
  - Vomiting [Unknown]
  - Oropharyngeal pain [Unknown]
  - Infection [Unknown]
  - White blood cell count decreased [Recovering/Resolving]

NARRATIVE: CASE EVENT DATE: 20241017
